FAERS Safety Report 11748046 (Version 1)
Quarter: 2015Q4

REPORT INFORMATION
  Report Type: Spontaneous
  Country: BR (occurrence: BR)
  Receive Date: 20151117
  Receipt Date: 20151117
  Transmission Date: 20160304
  Serious: Yes (Other)
  Sender: FDA-Public Use
  Company Number: BR-ELI_LILLY_AND_COMPANY-BR201511000814

PATIENT
  Age: 83 Year
  Sex: Female

DRUGS (3)
  1. HUMALOG [Suspect]
     Active Substance: INSULIN LISPRO
     Indication: TYPE 2 DIABETES MELLITUS
     Dosage: 2 IU, 5 TIMES DAILY
     Route: 058
     Dates: start: 20151030
  2. DONAREN [Concomitant]
     Active Substance: TRAZODONE HYDROCHLORIDE
     Dosage: 50 MG, UNKNOWN
     Route: 065
  3. SEROQUEL [Concomitant]
     Active Substance: QUETIAPINE FUMARATE
     Dosage: 50 MG, UNKNOWN
     Route: 065

REACTIONS (8)
  - Blood glucose increased [Unknown]
  - Gait disturbance [Unknown]
  - Speech disorder [Unknown]
  - Incorrect product storage [Unknown]
  - Drug dose omission [Recovered/Resolved]
  - Muscle atrophy [Unknown]
  - Seizure [Unknown]
  - Hypokinesia [Unknown]

NARRATIVE: CASE EVENT DATE: 20151030
